FAERS Safety Report 15267501 (Version 4)
Quarter: 2019Q3

REPORT INFORMATION
  Report Type: Spontaneous
  Country: US (occurrence: US)
  Receive Date: 20180811
  Receipt Date: 20190725
  Transmission Date: 20191004
  Serious: No
  Sender: FDA-Public Use
  Company Number: US-HORIZON-KRY-0156-2018

PATIENT
  Age: 63 Year
  Sex: Male

DRUGS (5)
  1. COLCHICINE. [Concomitant]
     Active Substance: COLCHICINE
  2. LOVAZA [Concomitant]
     Active Substance: OMEGA-3-ACID ETHYL ESTERS
  3. KRYSTEXXA [Suspect]
     Active Substance: PEGLOTICASE
     Indication: GOUT
     Dosage: 8 MG EVERY 2 WEEKS
     Route: 041
     Dates: start: 20180509, end: 20180611
  4. CLINDAMYCIN. [Interacting]
     Active Substance: CLINDAMYCIN
     Indication: DENTAL CLEANING
  5. BENADRYL [Interacting]
     Active Substance: DIPHENHYDRAMINE HYDROCHLORIDE

REACTIONS (4)
  - Panic attack [Recovered/Resolved]
  - Therapeutic response decreased [Unknown]
  - Chest pain [Recovered/Resolved]
  - Back pain [Recovered/Resolved]

NARRATIVE: CASE EVENT DATE: 20180523
